FAERS Safety Report 23599862 (Version 1)
Quarter: 2024Q1

REPORT INFORMATION
  Report Type: Spontaneous
  Country: FR (occurrence: FR)
  Receive Date: 20240306
  Receipt Date: 20240306
  Transmission Date: 20240410
  Serious: Yes (Hospitalization, Other)
  Sender: FDA-Public Use
  Company Number: FR-AMGEN-FRASP2024044216

PATIENT

DRUGS (1)
  1. FILGRASTIM [Suspect]
     Active Substance: FILGRASTIM
     Indication: Autologous haematopoietic stem cell transplant
     Dosage: UNK
     Route: 065

REACTIONS (5)
  - Unevaluable event [Unknown]
  - Neutropenia [Unknown]
  - Cytopenia [Unknown]
  - Anaemia [Unknown]
  - Thrombocytopenia [Unknown]
